FAERS Safety Report 4965447-3 (Version None)
Quarter: 2006Q1

REPORT INFORMATION
  Report Type: 
  Country: None (occurrence: None)
  Receive Date: 20060201
  Receipt Date: 20051227
  Transmission Date: 20060701
  Serious: No
  Sender: FDA-Public Use
  Company Number: 2005PV006309

PATIENT
  Age: 71 Year
  Sex: Female
  Weight: 80.7403 kg

DRUGS (6)
  1. BYETTA [Suspect]
     Indication: DIABETES MELLITUS NON-INSULIN-DEPENDENT
     Dosage: SEE IMAGE
     Route: 058
     Dates: start: 20051207, end: 20051211
  2. BYETTA [Suspect]
     Indication: DIABETES MELLITUS NON-INSULIN-DEPENDENT
     Dosage: SEE IMAGE
     Route: 058
     Dates: start: 20051212
  3. GLUCOPHAGE [Concomitant]
  4. ACTOS [Concomitant]
  5. AMARYL [Concomitant]
  6. ASPIRIN [Concomitant]

REACTIONS (3)
  - INJECTION SITE BRUISING [None]
  - NAUSEA [None]
  - VOMITING [None]
